FAERS Safety Report 15568600 (Version 1)
Quarter: 2018Q4

REPORT INFORMATION
  Report Type: Report from Study
  Country: None (occurrence: US)
  Receive Date: 20181031
  Receipt Date: 20181031
  Transmission Date: 20190205
  Serious: Yes (Hospitalization)
  Sender: FDA-Public Use
  Company Number: US-ABBVIE-18K-163-2536077-00

PATIENT
  Sex: Female
  Weight: 93.98 kg

DRUGS (1)
  1. HUMIRA [Suspect]
     Active Substance: ADALIMUMAB
     Indication: HIDRADENITIS
     Route: 058
     Dates: start: 201805, end: 201807

REACTIONS (9)
  - Oropharyngeal pain [Recovering/Resolving]
  - Chest discomfort [Unknown]
  - Breast cyst rupture [Recovered/Resolved]
  - Dyspnoea [Unknown]
  - Hidradenitis [Not Recovered/Not Resolved]
  - Productive cough [Recovering/Resolving]
  - Rhinorrhoea [Recovering/Resolving]
  - Infection [Recovered/Resolved]
  - Hidradenitis [Recovered/Resolved]

NARRATIVE: CASE EVENT DATE: 2018
